FAERS Safety Report 4647092-2 (Version None)
Quarter: 2005Q2

REPORT INFORMATION
  Report Type: 
  Country: None (occurrence: None)
  Receive Date: 20050331
  Receipt Date: 20050126
  Transmission Date: 20051028
  Serious: No
  Sender: FDA-Public Use
  Company Number: 05P-163-0288265-00

PATIENT
  Age: 49 Year
  Sex: Female

DRUGS (7)
  1. HUMIRA [Suspect]
     Indication: RHEUMATOID ARTHRITIS
     Dosage: 40 MG, SUBCUTANEOUS
     Route: 058
     Dates: start: 20040801
  2. AMLODIPINE BESYLATE [Concomitant]
  3. ESTROGENS CONJUGATED [Concomitant]
  4. ALENDRONATE SODIUM [Concomitant]
  5. LEVOTHYROXINE SODIUM [Concomitant]
  6. LEFLUNOMIDE [Concomitant]
  7. BUCINDOLOL HYDROCHLORIDE [Concomitant]

REACTIONS (1)
  - PSORIASIS [None]
